FAERS Safety Report 4645566-1 (Version None)
Quarter: 2005Q2

REPORT INFORMATION
  Report Type: 
  Country: None (occurrence: None)
  Receive Date: 20050425
  Receipt Date: 20050411
  Transmission Date: 20051028
  Serious: Yes (Other)
  Sender: FDA-Public Use
  Company Number: 2005057515

PATIENT
  Age: 39 Year
  Sex: Female

DRUGS (3)
  1. MISOPROSTOL TABLET (MISOPROSTOL) [Suspect]
     Indication: ILL-DEFINED DISORDER
     Dosage: 800 UNKNOWN
     Route: 065
  2. CARBAMAZEPINE [Suspect]
     Indication: EPILEPSY
     Dosage: ORAL
     Route: 048
  3. MIFEPRISTONE (MIFEPRISTONE) [Suspect]
     Indication: ILL-DEFINED DISORDER
     Dosage: 600 MG ORAL
     Route: 048

REACTIONS (3)
  - DRUG EXPOSURE DURING PREGNANCY [None]
  - DRUG INEFFECTIVE [None]
  - DRUG INTERACTION [None]
